FAERS Safety Report 5385376-3 (Version None)
Quarter: 2007Q3

REPORT INFORMATION
  Report Type: 
  Country: None (occurrence: None)
  Receive Date: 20070712
  Receipt Date: 20070702
  Transmission Date: 20080115
  Serious: Yes (Hospitalization)
  Sender: FDA-Public Use
  Company Number: NL-ROCHE-502497

PATIENT
  Age: 65 Year
  Sex: Female
  Weight: 52 kg

DRUGS (3)
  1. CAPECITABINE [Suspect]
     Indication: GASTRIC CANCER
     Dosage: 1650MG BID. 2 WEEKS OF TREATMENT AND 1 WEEK OF REST.
     Route: 048
     Dates: start: 20070607
  2. EPIRUBICIN [Suspect]
     Indication: GASTRIC CANCER
     Dosage: 80MG EVERY 3 WEEKS
     Route: 042
     Dates: start: 20070607
  3. CISPLATIN [Suspect]
     Indication: GASTRIC CANCER
     Dosage: 60MG EVERY 3 WEEKS.
     Route: 042
     Dates: start: 20070607

REACTIONS (1)
  - GASTRIC STENOSIS [None]
